FAERS Safety Report 8999490 (Version 1)
Quarter: 2013Q1

REPORT INFORMATION
  Report Type: Spontaneous
  Country: US (occurrence: US)
  Receive Date: 20130103
  Receipt Date: 20130103
  Transmission Date: 20140127
  Serious: Yes (Other)
  Sender: FDA-Public Use
  Company Number: US-ROCHE-1175293

PATIENT
  Sex: Female
  Weight: 2.34 kg

DRUGS (2)
  1. TAMIFLU [Suspect]
     Indication: ANTIVIRAL PROPHYLAXIS
     Dosage: DOSEE: TOTAL 15 MG
     Route: 048
     Dates: start: 20121227
  2. TAMIFLU [Suspect]
     Dosage: DOSEE: TOTAL 15 MG THROUGH NG TUBE
     Route: 048
     Dates: start: 20121228

REACTIONS (2)
  - Accidental overdose [Unknown]
  - Waist circumference increased [Unknown]
